FAERS Safety Report 18195084 (Version 1)
Quarter: 2020Q3

REPORT INFORMATION
  Report Type: Report from Study
  Country: None (occurrence: PT)
  Receive Date: 20200826
  Receipt Date: 20200826
  Transmission Date: 20201103
  Serious: Yes (Disabling)
  Sender: FDA-Public Use
  Company Number: PT-ABBVIE-20K-130-3536578-00

PATIENT
  Sex: Male

DRUGS (1)
  1. HUMIRA [Suspect]
     Active Substance: ADALIMUMAB
     Indication: HIDRADENITIS
     Route: 058

REACTIONS (4)
  - Infection [Unknown]
  - Gait inability [Unknown]
  - Hidradenitis [Unknown]
  - Pain [Unknown]

NARRATIVE: CASE EVENT DATE: 202008
